FAERS Safety Report 24765857 (Version 2)
Quarter: 2025Q1

REPORT INFORMATION
  Report Type: Report from Study
  Country: US (occurrence: US)
  Receive Date: 20241223
  Receipt Date: 20250122
  Transmission Date: 20250409
  Serious: Yes (Hospitalization, Other)
  Sender: ABBVIE
  Company Number: US-ABBVIE-6057263

PATIENT
  Age: 57 Year
  Sex: Female

DRUGS (1)
  1. VENCLEXTA [Suspect]
     Active Substance: VENETOCLAX
     Indication: Plasma cell myeloma
     Dosage: TAKE 4 TABLET(S) BY MOUTH (400MG) DAILY TAKE WITH A MEAL AND WATER. DO NOT CHEW, CRUSH, OR BREAK TAB
     Route: 048

REACTIONS (4)
  - Renal disorder [Unknown]
  - Off label use [Unknown]
  - Pulmonary oedema [Unknown]
  - Thrombosis [Unknown]
